FAERS Safety Report 9252187 (Version 1)
Quarter: 2013Q1

REPORT INFORMATION
  Report Type: Spontaneous
  Country: US (occurrence: None)
  Receive Date: 20130305
  Receipt Date: 20130305
  Transmission Date: 20140127
  Serious: Yes (Other)
  Sender: FDA-Public Use
  Company Number: 163-21880-12081886 (0)

PATIENT
  Sex: 0

DRUGS (9)
  1. REVLIMID [Suspect]
     Indication: AMYLOIDOSIS
     Dosage: 1 IN 1 D
     Route: 048
     Dates: start: 20120721
  2. ACYCLOVIR (ACICLOVIR) (ACICLOVIR) [Suspect]
  3. ALLOPURINOL [Suspect]
  4. BUMEX [Suspect]
  5. NEXIUM [Suspect]
  6. ONDANSETRON (ONDANSETRON) [Suspect]
  7. PANTOPRAZOLE (PANTOPRAZOLE) [Suspect]
  8. PRADAXA [Suspect]
  9. SPIRONOLACTONE (SPIRONOLACTONE) [Suspect]

REACTIONS (1)
  - Dry mouth [None]
